FAERS Safety Report 6157129-X (Version None)
Quarter: 2009Q2

REPORT INFORMATION
  Report Type: 
  Country: None (occurrence: None)
  Receive Date: 20090413
  Receipt Date: 20090403
  Transmission Date: 20091009
  Serious: Yes (Hospitalization)
  Sender: FDA-Public Use
  Company Number: A-US2009-24663

PATIENT
  Age: 82 Year
  Sex: Male

DRUGS (9)
  1. VENTAVIS [Suspect]
     Indication: PULMONARY HYPERTENSION
     Dosage: 20 UG QD, RESPIRATORY ; 10 UG QD, RESPIRATORY ; 5 UG QD, RESPIRATORY
     Route: 055
     Dates: start: 20080401, end: 20080101
  2. VENTAVIS [Suspect]
     Indication: PULMONARY HYPERTENSION
     Dosage: 20 UG QD, RESPIRATORY ; 10 UG QD, RESPIRATORY ; 5 UG QD, RESPIRATORY
     Route: 055
     Dates: start: 20080101, end: 20081224
  3. VENTAVIS [Suspect]
     Indication: PULMONARY HYPERTENSION
     Dosage: 20 UG QD, RESPIRATORY ; 10 UG QD, RESPIRATORY ; 5 UG QD, RESPIRATORY
     Route: 055
     Dates: start: 20090202, end: 20090211
  4. PREVISCAN (FLUINDIONE) [Concomitant]
  5. ATACAND [Concomitant]
  6. LANSOPRAZOLE [Concomitant]
  7. PERMIXON (SERENOA REPENS) [Concomitant]
  8. POTASSIUM CHLORIDE [Concomitant]
  9. STABLON (TIANEPTINE) [Concomitant]

REACTIONS (9)
  - ABNORMAL BEHAVIOUR [None]
  - DYSPEPSIA [None]
  - HYPERCREATINAEMIA [None]
  - HYPOCALCAEMIA [None]
  - HYPOKALAEMIA [None]
  - HYPOTENSION [None]
  - MALAISE [None]
  - NAUSEA [None]
  - WEIGHT DECREASED [None]
